FAERS Safety Report 25530149 (Version 1)
Quarter: 2025Q3

REPORT INFORMATION
  Report Type: Spontaneous
  Country: US (occurrence: US)
  Receive Date: 20250708
  Receipt Date: 20250708
  Transmission Date: 20251021
  Serious: Yes (Other)
  Sender: AMGEN
  Company Number: US-AMGEN-USASP2025132610

PATIENT

DRUGS (2)
  1. APREMILAST [Suspect]
     Active Substance: APREMILAST
     Indication: Psoriatic arthropathy
     Dosage: 30 MILLIGRAM, BID
     Route: 065
  2. DEUCRAVACITINIB [Suspect]
     Active Substance: DEUCRAVACITINIB
     Indication: Psoriatic arthropathy
     Dosage: 6 MILLIGRAM, QD
     Route: 065

REACTIONS (13)
  - Embolism [Unknown]
  - Psoriatic arthropathy [Unknown]
  - Cardiovascular disorder [Unknown]
  - Infection [Unknown]
  - Neoplasm malignant [Unknown]
  - COVID-19 [Unknown]
  - Upper respiratory tract infection [Unknown]
  - Urinary tract infection [Unknown]
  - Nasopharyngitis [Unknown]
  - Diarrhoea [Unknown]
  - Hypertension [Unknown]
  - Nausea [Unknown]
  - Headache [Unknown]
